FAERS Safety Report 12978297 (Version 1)
Quarter: 2016Q4

REPORT INFORMATION
  Report Type: Spontaneous
  Country: US (occurrence: US)
  Receive Date: 20161127
  Receipt Date: 20161127
  Transmission Date: 20170207
  Serious: No
  Sender: FDA-Public Use
  Company Number: None

PATIENT
  Age: 56 Year
  Weight: 98.1 kg

DRUGS (4)
  1. JARDIANCE [Suspect]
     Active Substance: EMPAGLIFLOZIN
  2. INVOKANA [Suspect]
     Active Substance: CANAGLIFLOZIN
     Indication: DIABETES MELLITUS
     Dosage: ?          QUANTITY:1 TABLET(S);?
     Dates: start: 20161019, end: 20161028
  3. LISINOPRIL. [Concomitant]
     Active Substance: LISINOPRIL
  4. AMLODIPINE BESYLATE. [Concomitant]
     Active Substance: AMLODIPINE BESYLATE

REACTIONS (4)
  - Fungal infection [None]
  - Bronchitis [None]
  - Vulvovaginal pain [None]
  - Dysuria [None]
